FAERS Safety Report 5580190-8 (Version None)
Quarter: 2007Q4

REPORT INFORMATION
  Report Type: 
  Country: None (occurrence: None)
  Receive Date: 20071227
  Receipt Date: 20071227
  Transmission Date: 20080405
  Serious: Yes (Hospitalization)
  Sender: FDA-Public Use
  Company Number: None

PATIENT
  Age: 38 Year
  Sex: Male
  Weight: 71.2147 kg

DRUGS (1)
  1. ALBUTEROL [Suspect]
     Indication: BRONCHITIS
     Dosage: 2 4X DAILY OTHER
     Route: 050

REACTIONS (4)
  - DELIRIUM [None]
  - GENERAL PHYSICAL HEALTH DETERIORATION [None]
  - HEART RATE INCREASED [None]
  - PNEUMONIA PRIMARY ATYPICAL [None]
